FAERS Safety Report 8905440 (Version 1)
Quarter: 2012Q4

REPORT INFORMATION
  Report Type: 
  Country: SE (occurrence: SE)
  Receive Date: 20121109
  Receipt Date: 20121109
  Transmission Date: 20130627
  Serious: Yes (Hospitalization)
  Sender: FDA-Public Use
  Company Number: SE-PFIZER INC-2012276858

PATIENT
  Age: 76 Year
  Sex: Male
  Weight: 98 kg

DRUGS (7)
  1. GENOTROPIN [Suspect]
     Indication: GROWTH HORMONE DEFICIENCY
     Dosage: 0.2 mg, 1x/day,7 injections/week
     Route: 058
     Dates: start: 20001128
  2. LOMIR [Concomitant]
     Indication: ESSENTIAL HYPERTENSION
     Dosage: UNK
     Dates: start: 19910701
  3. COZAAR [Concomitant]
     Indication: ESSENTIAL HYPERTENSION
     Dosage: UNK
     Dates: start: 19960701
  4. LEVOTHYROXINE [Concomitant]
     Indication: TSH DECREASED
     Dosage: UNK
     Dates: start: 19961215
  5. IMOVANE [Concomitant]
     Indication: INSOMNIA
     Dosage: UNK
     Dates: start: 19961215
  6. NEBIDO [Concomitant]
     Indication: HYPOGONADISM
     Dosage: UNK
     Dates: start: 20090608
  7. METFORMIN [Concomitant]
     Dosage: UNK
     Dates: start: 2006

REACTIONS (1)
  - Diverticulitis [Unknown]
